FAERS Safety Report 5768292-4 (Version None)
Quarter: 2008Q2

REPORT INFORMATION
  Report Type: 
  Country: None (occurrence: None)
  Receive Date: 20080612
  Receipt Date: 20080603
  Transmission Date: 20081010
  Serious: Yes (Congenital Anomaly)
  Sender: FDA-Public Use
  Company Number: US-AMGEN-US276330

PATIENT

DRUGS (10)
  1. ENBREL [Suspect]
     Route: 064
     Dates: start: 20030416, end: 20030701
  2. ENBREL [Suspect]
     Route: 058
     Dates: start: 20040101, end: 20060501
  3. REMICADE [Concomitant]
     Route: 064
     Dates: start: 20060613
  4. METHOTREXATE [Concomitant]
     Route: 064
     Dates: start: 20040329
  5. METHADONE HCL [Concomitant]
     Route: 064
     Dates: start: 20070701
  6. ALBUTEROL [Concomitant]
     Route: 064
     Dates: start: 20070201
  7. NEXIUM [Concomitant]
     Route: 064
     Dates: start: 20070201
  8. VITAMIN TAB [Concomitant]
     Route: 064
     Dates: start: 20070601, end: 20070901
  9. OXYCODONE HCL [Concomitant]
     Route: 064
     Dates: start: 20061005, end: 20070701
  10. OXYCODONE HCL [Concomitant]
     Dates: start: 20061005, end: 20070701

REACTIONS (1)
  - ATRIOVENTRICULAR SEPTAL DEFECT [None]
